FAERS Safety Report 7337954-X (Version None)
Quarter: 2011Q1

REPORT INFORMATION
  Report Type: 
  Country: None (occurrence: None)
  Receive Date: 20110308
  Receipt Date: 20110225
  Transmission Date: 20110831
  Serious: Yes (Hospitalization)
  Sender: FDA-Public Use
  Company Number: JP-ROCHE-763506

PATIENT
  Sex: Female
  Weight: 44.8 kg

DRUGS (12)
  1. TOCILIZUMAB [Suspect]
     Route: 042
     Dates: start: 20081112, end: 20081211
  2. CELCOX [Concomitant]
     Dosage: BEGININING OF DOSAGE DAY AFTER BREAKFAST: TRIAL PREINITIATION
     Route: 048
  3. VITAMEDIN [Concomitant]
     Dosage: BEGINNING OF DOSAGE DAY AFTER BREAKFAST: TRIAL PREINITIATION
     Route: 048
  4. KLARICID [Concomitant]
     Dosage: BEGINNING OF DOSAGE DAY AFTER BREAKFAST: TRIAL PREINITIATION
     Route: 048
  5. PREDONINE [Concomitant]
     Dosage: AFTER THE SUPPER
     Route: 048
     Dates: start: 20090924
  6. BAKTAR [Concomitant]
     Dosage: AFTER THE BREAKFAST
     Route: 048
     Dates: start: 20091211
  7. ISCOTIN [Concomitant]
     Dosage: BEGININING OF DOSAGE DAY AFTER BREAKFAST: TRIAL PREINITIATION
     Route: 048
  8. OMEPRAL [Concomitant]
     Dosage: BEGINNING OF DOSAGE DAY AFTER BREAKFAST: TRIAL PREINITIATION
     Route: 048
  9. OCRELIZUMAB [Suspect]
     Indication: RHEUMATOID ARTHRITIS
     Route: 042
     Dates: start: 20090722
  10. OCRELIZUMAB [Suspect]
     Route: 042
     Dates: start: 20090805, end: 20090805
  11. FERROUS CITRATE [Concomitant]
     Dosage: BEGININING OF DOSAGE DAY AFTER THE MEAL IN THE MORNING AND EVENING: TRIAL
     Route: 048
  12. RHEUMATREX [Concomitant]
     Dosage: THE BEGINNING OF DOSAGE DAY: TRIAL PREINITIATION -IT IS 4 MG-0-2 MG ONCE A WEEK AFTER THE MEAL
     Route: 048

REACTIONS (1)
  - JOINT DESTRUCTION [None]
